FAERS Safety Report 24585093 (Version 2)
Quarter: 2024Q4

REPORT INFORMATION
  Report Type: Report from Study
  Country: BR (occurrence: BR)
  Receive Date: 20241106
  Receipt Date: 20241225
  Transmission Date: 20250115
  Serious: Yes (Other)
  Sender: AMGEN
  Company Number: BR-AMGEN-BRASL2024162606

PATIENT
  Age: 56 Year
  Sex: Female

DRUGS (4)
  1. VECTIBIX [Suspect]
     Active Substance: PANITUMUMAB
     Indication: Colorectal cancer metastatic
     Dosage: UNK, EVERY 15 DAY
     Route: 040
     Dates: start: 202408
  2. CAPECITABINE [Suspect]
     Active Substance: CAPECITABINE
     Indication: Product used for unknown indication
     Dosage: UNK
     Route: 065
     Dates: start: 2024
  3. GLIFAGE [Concomitant]
     Active Substance: METFORMIN HYDROCHLORIDE
     Dosage: 1 DOSAGE FORM, QHS (1 TABLET AT NIGHT)
  4. ORGANONEURO CEREBRAL [Concomitant]
     Indication: Product used for unknown indication
     Dosage: UNK,  3 PILLS PER DAY
     Route: 065

REACTIONS (19)
  - Neuropathy peripheral [Recovering/Resolving]
  - Eye inflammation [Recovering/Resolving]
  - Mouth ulceration [Recovering/Resolving]
  - Angular cheilitis [Recovering/Resolving]
  - Paraesthesia [Recovering/Resolving]
  - Diarrhoea [Recovering/Resolving]
  - Asthenia [Recovering/Resolving]
  - Chest discomfort [Recovering/Resolving]
  - Head discomfort [Recovering/Resolving]
  - Colostomy bag user [Recovering/Resolving]
  - Dysphagia [Recovering/Resolving]
  - Platelet count decreased [Recovering/Resolving]
  - Memory impairment [Recovering/Resolving]
  - Swollen tongue [Recovering/Resolving]
  - Swelling face [Recovering/Resolving]
  - Paraesthesia oral [Recovering/Resolving]
  - Speech disorder [Recovering/Resolving]
  - Malaise [Recovering/Resolving]
  - Somnolence [Recovering/Resolving]

NARRATIVE: CASE EVENT DATE: 20240101
